FAERS Safety Report 9440487 (Version 2)
Quarter: 2013Q3

REPORT INFORMATION
  Report Type: Spontaneous
  Country: DE (occurrence: DE)
  Receive Date: 20130805
  Receipt Date: 20130814
  Transmission Date: 20140515
  Serious: Yes (Hospitalization)
  Sender: FDA-Public Use
  Company Number: DE-JNJFOC-20130718549

PATIENT
  Age: 71 Year
  Sex: Male
  Weight: 88 kg

DRUGS (8)
  1. XARELTO [Suspect]
     Indication: DEEP VEIN THROMBOSIS
     Route: 048
     Dates: start: 20130517
  2. XARELTO [Suspect]
     Indication: DEEP VEIN THROMBOSIS
     Route: 048
     Dates: start: 20130419
  3. XARELTO [Suspect]
     Indication: DEEP VEIN THROMBOSIS
     Route: 048
     Dates: start: 20130704, end: 20130716
  4. BRINZOLAMIDE [Concomitant]
     Route: 065
  5. PANTOPRAZOLE [Concomitant]
     Route: 065
  6. TRAVATAN [Concomitant]
     Route: 065
  7. RAMIPRIL-RATIOPHARM [Concomitant]
     Route: 065
  8. METFORMIN [Concomitant]
     Route: 065

REACTIONS (1)
  - Skin disorder [Recovering/Resolving]
